FAERS Safety Report 20785363 (Version 1)
Quarter: 2022Q2

REPORT INFORMATION
  Report Type: Spontaneous
  Country: US (occurrence: None)
  Receive Date: 20220504
  Receipt Date: 20220504
  Transmission Date: 20220720
  Serious: No
  Sender: FDA-Public Use
  Company Number: 2022A166528

PATIENT
  Sex: Female
  Weight: 124.7 kg

DRUGS (3)
  1. FARXIGA [Suspect]
     Active Substance: DAPAGLIFLOZIN PROPANEDIOL
     Indication: Diabetes mellitus
     Route: 048
     Dates: start: 202203
  2. FARXIGA [Suspect]
     Active Substance: DAPAGLIFLOZIN PROPANEDIOL
     Indication: Cardiac failure congestive
     Route: 048
     Dates: start: 202203
  3. INSULIN NOS [Concomitant]
     Active Substance: INSULIN NOS
     Indication: Diabetes mellitus
     Route: 065

REACTIONS (12)
  - Asthenia [Unknown]
  - Malaise [Unknown]
  - Diarrhoea [Unknown]
  - Fungal infection [Recovered/Resolved]
  - Skin swelling [Recovered/Resolved]
  - Swelling [Recovered/Resolved]
  - Nausea [Unknown]
  - Dysstasia [Unknown]
  - Impaired driving ability [Unknown]
  - Blood glucose increased [Unknown]
  - Fatigue [Unknown]
  - General physical health deterioration [Unknown]
